FAERS Safety Report 5821245-X (Version None)
Quarter: 2008Q3

REPORT INFORMATION
  Report Type: 
  Country: None (occurrence: None)
  Receive Date: 20080722
  Receipt Date: 20080722
  Transmission Date: 20090109
  Serious: Yes (Other)
  Sender: FDA-Public Use
  Company Number: None

PATIENT
  Sex: Male
  Weight: 82.92 kg

DRUGS (1)
  1. FLUDARABINE PHOSPHATE [Suspect]

REACTIONS (3)
  - MALAISE [None]
  - RASH ERYTHEMATOUS [None]
  - SKIN REACTION [None]
